FAERS Safety Report 23565894 (Version 1)
Quarter: 2024Q1

REPORT INFORMATION
  Report Type: Spontaneous
  Country: US (occurrence: None)
  Receive Date: 20240225
  Receipt Date: 20240225
  Transmission Date: 20240410
  Serious: Yes (Disabling)
  Sender: FDA-Public Use
  Company Number: None

PATIENT
  Age: 64 Year
  Sex: Female
  Weight: 58.05 kg

DRUGS (1)
  1. LACOSAMIDE [Suspect]
     Active Substance: LACOSAMIDE
     Indication: Seizure
     Dosage: FREQUENCY : TWICE A DAY;?
     Route: 048
     Dates: end: 20240223

REACTIONS (5)
  - Palpitations [None]
  - Chest pain [None]
  - Chest discomfort [None]
  - Oropharyngeal pain [None]
  - Energy increased [None]

NARRATIVE: CASE EVENT DATE: 20240220
